FAERS Safety Report 9435219 (Version 2)
Quarter: 2013Q3

REPORT INFORMATION
  Report Type: Spontaneous
  Country: US (occurrence: US)
  Receive Date: 20130801
  Receipt Date: 20130819
  Transmission Date: 20140515
  Serious: No
  Sender: FDA-Public Use
  Company Number: US-009507513-1307USA016681

PATIENT
  Age: 61 Year
  Sex: Female
  Weight: 68.27 kg

DRUGS (6)
  1. CORICIDIN HBP COUGH AND COLD [Suspect]
     Indication: SINUS DISORDER
     Dosage: 1 DF, ONCE
     Route: 048
     Dates: start: 20130726
  2. CORICIDIN HBP COUGH AND COLD [Suspect]
     Indication: NASOPHARYNGITIS
  3. CORICIDIN HBP COUGH AND COLD [Suspect]
     Indication: MEDICAL OBSERVATION
  4. DILTIAZEM CD [Concomitant]
     Indication: HYPERTENSION
     Dosage: UNK, UNKNOWN
  5. MECLIZINE [Concomitant]
     Indication: VERTIGO
     Dosage: UNK, UNKNOWN
  6. LIVALO [Concomitant]
     Indication: BLOOD CHOLESTEROL
     Dosage: UNK, UNKNOWN

REACTIONS (1)
  - Drug ineffective [Unknown]
